FAERS Safety Report 26215934 (Version 1)
Quarter: 2025Q4

REPORT INFORMATION
  Report Type: Report from Study
  Country: US (occurrence: US)
  Receive Date: 20251231
  Receipt Date: 20251231
  Transmission Date: 20260118
  Serious: No
  Sender: DECIPHERA PHARMACEUTICALS
  Company Number: US-DECIPHERA PHARMACEUTICALS LLC-2025US001661

PATIENT
  Age: 42 Year
  Sex: Male

DRUGS (2)
  1. ROMVIMZA [Suspect]
     Active Substance: VIMSELTINIB
     Indication: Benign connective tissue neoplasm
     Dosage: 30 MILLIGRAM, TWICE WEEKLY
     Dates: start: 20251206
  2. ROMVIMZA [Suspect]
     Active Substance: VIMSELTINIB
     Indication: Benign soft tissue neoplasm

REACTIONS (2)
  - Sinusitis [Unknown]
  - Dry eye [Unknown]

NARRATIVE: CASE EVENT DATE: 20251217
